FAERS Safety Report 21102688 (Version 1)
Quarter: 2022Q3

REPORT INFORMATION
  Report Type: Spontaneous
  Country: AU (occurrence: AU)
  Receive Date: 20220719
  Receipt Date: 20220719
  Transmission Date: 20221027
  Serious: Yes (Hospitalization, Other)
  Sender: FDA-Public Use
  Company Number: AU-SUN PHARMACEUTICAL INDUSTRIES LTD-2022R1-344717

PATIENT
  Age: 26 Year
  Sex: Male
  Weight: 70 kg

DRUGS (1)
  1. VALPROIC ACID [Suspect]
     Active Substance: VALPROIC ACID
     Indication: Product used for unknown indication
     Dosage: 200 X 500MG (100 G,1.4 G/KG)
     Route: 048

REACTIONS (2)
  - Overdose [Recovered/Resolved]
  - Coma scale abnormal [Recovered/Resolved]
